FAERS Safety Report 6860172-6 (Version None)
Quarter: 2010Q3

REPORT INFORMATION
  Report Type: 
  Country: None (occurrence: None)
  Receive Date: 20100719
  Receipt Date: 20100719
  Transmission Date: 20110219
  Serious: Yes (Hospitalization)
  Sender: FDA-Public Use
  Company Number: None

PATIENT
  Age: 66 Year
  Sex: Male

DRUGS (1)
  1. SORAFENIB [Suspect]
     Dosage: 400 MG BID PO
     Route: 048
     Dates: start: 20100524, end: 20100604

REACTIONS (1)
  - PANCREATITIS ACUTE [None]
